FAERS Safety Report 24609053 (Version 1)
Quarter: 2024Q4

REPORT INFORMATION
  Report Type: Spontaneous
  Country: CN (occurrence: CN)
  Receive Date: 20241112
  Receipt Date: 20241112
  Transmission Date: 20250115
  Serious: Yes (Hospitalization)
  Sender: BAYER HEALTHCARE PHARMACEUTICALS INC.
  Company Number: CN-BAYER-2024A160373

PATIENT
  Age: 82 Year
  Sex: Female

DRUGS (3)
  1. GLUCOBAY [Interacting]
     Active Substance: ACARBOSE
     Indication: Diabetes mellitus
     Dosage: 50 MG, TID
     Route: 048
     Dates: start: 20240601, end: 20240621
  2. METFORMIN HYDROCHLORIDE\SITAGLIPTIN PHOSPHATE [Interacting]
     Active Substance: METFORMIN HYDROCHLORIDE\SITAGLIPTIN PHOSPHATE
     Indication: Diabetes mellitus
     Dosage: 2 DF, BID
     Route: 048
     Dates: start: 20240601, end: 20240621
  3. ISOPHANE INSULIN HUMAN SUSPENSION [Interacting]
     Active Substance: ISOPHANE INSULIN HUMAN SUSPENSION
     Indication: Diabetes mellitus
     Dosage: 20 U, BID
     Route: 058
     Dates: start: 20240601, end: 20240621

REACTIONS (4)
  - Hypoglycaemic coma [Recovered/Resolved]
  - Altered state of consciousness [Recovered/Resolved]
  - Palpitations [Recovered/Resolved]
  - Asthenia [Recovered/Resolved]

NARRATIVE: CASE EVENT DATE: 20240621
